FAERS Safety Report 21239535 (Version 1)
Quarter: 2022Q3

REPORT INFORMATION
  Report Type: Report from Study
  Country: EG (occurrence: EG)
  Receive Date: 20220822
  Receipt Date: 20220822
  Transmission Date: 20221027
  Serious: Yes (Other)
  Sender: FDA-Public Use
  Company Number: EG-NOVARTISPH-NVSC2022EG185724

PATIENT
  Age: 34 Year
  Sex: Female

DRUGS (8)
  1. GLIVEC [Suspect]
     Active Substance: IMATINIB MESYLATE
     Indication: Chronic myeloid leukaemia
     Dosage: UNK
     Route: 048
     Dates: start: 2006
  2. GLIVEC [Suspect]
     Active Substance: IMATINIB MESYLATE
     Dosage: 400 MG, QD (4 CAPS/DAY) (TILL THE END OF SEPTEMBER OR BEGINNING OF OCTOBER 2020)
     Route: 048
     Dates: start: 2007, end: 2020
  3. GLIVEC [Suspect]
     Active Substance: IMATINIB MESYLATE
     Dosage: 600 MG, QD (FROM THE END OF SEPTEMBER OR THE BEGINNING OF OCTOBER 2020)
     Route: 048
     Dates: start: 2020, end: 202011
  4. GLIVEC [Suspect]
     Active Substance: IMATINIB MESYLATE
     Dosage: 400 MG, QD
     Route: 048
     Dates: start: 202011, end: 20210715
  5. GLIVEC [Suspect]
     Active Substance: IMATINIB MESYLATE
     Indication: Chronic myeloid leukaemia
     Dosage: UNK
     Route: 048
     Dates: start: 2006
  6. GLIVEC [Suspect]
     Active Substance: IMATINIB MESYLATE
     Dosage: 400 MG, QD (1 TABLET/DAY) ((TILL THE END OF SEPTEMBER OR BEGINNING OF OCTOBER 2020)
     Route: 048
     Dates: start: 2007, end: 2020
  7. GLIVEC [Suspect]
     Active Substance: IMATINIB MESYLATE
     Dosage: 600 MG, QD (FROM THE END OF SEPTEMBER OR THE BEGINNING OF OCTOBER 2020)
     Route: 048
     Dates: start: 2020, end: 202011
  8. GLIVEC [Suspect]
     Active Substance: IMATINIB MESYLATE
     Dosage: 400 MG, QD
     Route: 048
     Dates: start: 202011, end: 20210715

REACTIONS (3)
  - Polymerase chain reaction positive [Recovering/Resolving]
  - Drug resistance [Recovering/Resolving]
  - Maternal exposure during pregnancy [Unknown]

NARRATIVE: CASE EVENT DATE: 20210301
